FAERS Safety Report 8887476 (Version 2)
Quarter: 2012Q4

REPORT INFORMATION
  Report Type: 
  Country: DE (occurrence: DK)
  Receive Date: 20121105
  Receipt Date: 20121114
  Transmission Date: 20130627
  Serious: Yes (Hospitalization, Congenital Anomaly)
  Sender: FDA-Public Use
  Company Number: PHHY2012DK098914

PATIENT
  Sex: Female
  Weight: 1.69 kg

DRUGS (11)
  1. RAMIPRIL [Suspect]
     Indication: HYPERTENSION
     Route: 064
     Dates: end: 20120126
  2. RAMIPRIL [Suspect]
     Route: 064
     Dates: start: 20090709, end: 20100126
  3. METFORMIN [Suspect]
     Indication: TYPE 2 DIABETES MELLITUS
     Route: 064
     Dates: end: 20100126
  4. METFORMIN [Suspect]
     Route: 064
     Dates: start: 20090709, end: 20100126
  5. METOPROLOL [Concomitant]
     Indication: HYPERTENSION
     Route: 064
     Dates: start: 20090709, end: 20100126
  6. METOPROLOL [Concomitant]
     Route: 064
     Dates: start: 20090709, end: 20100126
  7. METHYLDOPA [Concomitant]
     Indication: HYPERTENSION
     Route: 064
     Dates: start: 20100126, end: 20100210
  8. NOVORAPID [Concomitant]
     Indication: TYPE 2 DIABETES MELLITUS
     Route: 064
     Dates: start: 20100126, end: 20100210
  9. NOVORAPID [Concomitant]
     Route: 064
     Dates: start: 20100126, end: 20100210
  10. PROTAPHANE [Concomitant]
     Indication: TYPE 2 DIABETES MELLITUS
     Route: 064
     Dates: start: 20100126, end: 20100210
  11. PROTAPHANE [Concomitant]
     Route: 064
     Dates: start: 20100126, end: 20100210

REACTIONS (15)
  - Neonatal respiratory distress syndrome [Unknown]
  - Apgar score abnormal [Unknown]
  - Premature baby [Unknown]
  - Heart disease congenital [Unknown]
  - Congenital aortic valve stenosis [Unknown]
  - Congenital heart valve disorder [Unknown]
  - Bicuspid aortic valve [Unknown]
  - Mitral valve incompetence [Unknown]
  - Patent ductus arteriosus [Unknown]
  - Atrial septal defect [Unknown]
  - Aortic valve incompetence [Unknown]
  - Cardiac failure [Unknown]
  - Pulmonary hypertension [Unknown]
  - Urine output decreased [Unknown]
  - Foetal exposure during pregnancy [Unknown]
